FAERS Safety Report 6540476-7 (Version None)
Quarter: 2010Q1

REPORT INFORMATION
  Report Type: 
  Country: None (occurrence: None)
  Receive Date: 20100113
  Receipt Date: 20100104
  Transmission Date: 20100710
  Serious: Yes (Life-Threatening, Hospitalization)
  Sender: FDA-Public Use
  Company Number: 003138

PATIENT
  Age: 78 Year
  Sex: Male
  Weight: 96 kg

DRUGS (7)
  1. PEGAPTANIB SODIUM;PLACEBO (PEGAPTANIB SODIUM) UNKNOWN [Suspect]
     Indication: DIABETIC RETINAL OEDEMA
     Dosage: 0.3 MG, EVERY 6 WEEKS, INTRAOCULAR
     Route: 031
     Dates: start: 20071227, end: 20090810
  2. ENALAPRIL MALEATE [Concomitant]
  3. FUROSEMIDE [Concomitant]
  4. ASPIRIN [Concomitant]
  5. LEVOTHYROXINE SODIUM [Concomitant]
  6. HUMALOG [Concomitant]
  7. HUMINSULIN BASAL (INSULIN HUMAN) [Concomitant]

REACTIONS (4)
  - CEREBROVASCULAR ACCIDENT [None]
  - CONVULSION [None]
  - DYSPHONIA [None]
  - PNEUMONIA [None]
